FAERS Safety Report 6544723-7 (Version None)
Quarter: 2010Q1

REPORT INFORMATION
  Report Type: 
  Country: None (occurrence: None)
  Receive Date: 20100121
  Receipt Date: 20100111
  Transmission Date: 20100710
  Serious: Yes (Death, Life-Threatening, Other)
  Sender: FDA-Public Use
  Company Number: FR-JNJFOC-20090706406

PATIENT
  Sex: Male
  Weight: 70 kg

DRUGS (11)
  1. IMIPENEM [Suspect]
     Indication: PNEUMONIA
     Route: 041
     Dates: start: 20090703, end: 20090713
  2. PLACEBO [Suspect]
     Indication: PNEUMONIA
     Route: 041
  3. HEPARIN [Suspect]
     Indication: ANTICOAGULANT THERAPY
  4. SOLU-MEDROL [Suspect]
     Indication: DRUG USE FOR UNKNOWN INDICATION
  5. LEVOPHED [Concomitant]
     Indication: CARDIOVASCULAR DISORDER
  6. SUFENTANIL CITRATE [Concomitant]
     Indication: SEDATION
  7. NIMBEX [Concomitant]
     Indication: SEDATION
  8. KETAMINE HCL [Concomitant]
     Indication: SEDATION
  9. MIDAZOLAM HCL [Concomitant]
     Indication: SEDATION
  10. ZOVIRAX [Concomitant]
     Indication: ANTIBIOTIC THERAPY
  11. NEXIUM [Concomitant]

REACTIONS (5)
  - ACUTE RESPIRATORY DISTRESS SYNDROME [None]
  - GASTRIC HAEMORRHAGE [None]
  - MULTI-ORGAN FAILURE [None]
  - PNEUMONIA [None]
  - RENAL TUBULAR ACIDOSIS [None]
